FAERS Safety Report 4790103-4 (Version None)
Quarter: 2005Q3

REPORT INFORMATION
  Report Type: 
  Country: None (occurrence: None)
  Receive Date: 20050914
  Receipt Date: 20041216
  Transmission Date: 20060218
  Serious: Yes (Hospitalization)
  Sender: FDA-Public Use
  Company Number: 163-20785-04120470

PATIENT
  Age: 89 Year
  Sex: Female

DRUGS (1)
  1. THALOMID [Suspect]
     Indication: CHRONIC MYELOMONOCYTIC LEUKAEMIA
     Dosage: 50 MG, DAILY, ORAL
     Route: 048
     Dates: start: 20030801, end: 20040923

REACTIONS (3)
  - PNEUMONIA [None]
  - RENAL FAILURE [None]
  - SEPSIS [None]
